FAERS Safety Report 17436780 (Version 2)
Quarter: 2020Q2

REPORT INFORMATION
  Report Type: Spontaneous
  Country: US (occurrence: US)
  Receive Date: 20200219
  Receipt Date: 20200414
  Transmission Date: 20200713
  Serious: No
  Sender: FDA-Public Use
  Company Number: US-SA-2020SA041537

PATIENT
  Age: 52 Year
  Sex: Male

DRUGS (23)
  1. DEXTRA [Concomitant]
     Active Substance: DEXTROMETHORPHAN HYDROBROMIDE
  2. MELATONIN [Concomitant]
     Active Substance: MELATONIN
  3. EPIPEN JR [Concomitant]
     Active Substance: EPINEPHRINE
  4. MONTELUKAST [Concomitant]
     Active Substance: MONTELUKAST SODIUM
  5. CLONAZEPAM. [Concomitant]
     Active Substance: CLONAZEPAM
  6. DILTIAZEM XR [Concomitant]
     Active Substance: DILTIAZEM
  7. METFORMIN [Concomitant]
     Active Substance: METFORMIN HYDROCHLORIDE
  8. OMEPRAZOLE. [Concomitant]
     Active Substance: OMEPRAZOLE
  9. BUPROPION. [Concomitant]
     Active Substance: BUPROPION
  10. CLARITHROMYCIN. [Concomitant]
     Active Substance: CLARITHROMYCIN
  11. CLARITIN [Concomitant]
     Active Substance: LORATADINE
  12. SIMVASTATIN. [Concomitant]
     Active Substance: SIMVASTATIN
  13. DULERA [Concomitant]
     Active Substance: FORMOTEROL FUMARATE DIHYDRATE\MOMETASONE FUROATE
  14. LOSARTAN. [Concomitant]
     Active Substance: LOSARTAN
  15. PREDNISONE. [Concomitant]
     Active Substance: PREDNISONE
  16. NASONEX [Concomitant]
     Active Substance: MOMETASONE FUROATE
  17. QVAR [Concomitant]
     Active Substance: BECLOMETHASONE DIPROPIONATE
  18. AMOX [AMOXICILLIN] [Concomitant]
     Active Substance: AMOXICILLIN
  19. DUPIXENT [Suspect]
     Active Substance: DUPILUMAB
     Indication: ASTHMA
     Dosage: 300 MG, QOW
     Route: 058
     Dates: start: 20150609
  20. ADDERALL [Concomitant]
     Active Substance: AMPHETAMINE ASPARTATE\AMPHETAMINE SULFATE\DEXTROAMPHETAMINE SACCHARATE\DEXTROAMPHETAMINE SULFATE
  21. AMPHETAMINE [Concomitant]
     Active Substance: AMPHETAMINE
  22. XOPENEX [Concomitant]
     Active Substance: LEVALBUTEROL HYDROCHLORIDE
  23. MOMETASONE [Concomitant]
     Active Substance: MOMETASONE

REACTIONS (2)
  - Depression [Not Recovered/Not Resolved]
  - Upper respiratory tract infection [Not Recovered/Not Resolved]

NARRATIVE: CASE EVENT DATE: 20200307
